FAERS Safety Report 16992825 (Version 3)
Quarter: 2020Q4

REPORT INFORMATION
  Report Type: Report from Study
  Country: None (occurrence: US)
  Receive Date: 20191105
  Receipt Date: 20201012
  Transmission Date: 20210113
  Serious: Yes (Hospitalization, Other)
  Sender: FDA-Public Use
  Company Number: US-ABBVIE-19K-163-2988176-00

PATIENT
  Age: 60 Year
  Sex: Female
  Weight: 88.08 kg

DRUGS (13)
  1. FLUOXETINE [Concomitant]
     Active Substance: FLUOXETINE HYDROCHLORIDE
     Indication: DEPRESSION
  2. ATORVASTATIN [Concomitant]
     Active Substance: ATORVASTATIN
     Indication: BLOOD CHOLESTEROL INCREASED
  3. AMBIEN [Concomitant]
     Active Substance: ZOLPIDEM TARTRATE
     Indication: SLEEP DISORDER THERAPY
  4. HUMIRA [Suspect]
     Active Substance: ADALIMUMAB
     Indication: CROHN^S DISEASE
     Route: 058
     Dates: start: 201811
  5. WARFARIN [Concomitant]
     Active Substance: WARFARIN
     Indication: ANTICOAGULANT THERAPY
  6. ALLOPURINOL. [Concomitant]
     Active Substance: ALLOPURINOL
     Indication: RENAL LITHIASIS PROPHYLAXIS
  7. CLONAZEPAM. [Concomitant]
     Active Substance: CLONAZEPAM
     Indication: ANXIETY
  8. LYRICA [Concomitant]
     Active Substance: PREGABALIN
     Indication: FIBROMYALGIA
  9. MAXALT [Concomitant]
     Active Substance: RIZATRIPTAN BENZOATE
     Indication: MIGRAINE
  10. HUMIRA [Suspect]
     Active Substance: ADALIMUMAB
     Route: 058
  11. PANTOPRAZOLE [Concomitant]
     Active Substance: PANTOPRAZOLE
     Indication: PROBIOTIC THERAPY
  12. METOPROLOL. [Concomitant]
     Active Substance: METOPROLOL
     Indication: HYPERTENSION
  13. ALLEGRA [Concomitant]
     Active Substance: FEXOFENADINE HYDROCHLORIDE
     Indication: SEASONAL ALLERGY

REACTIONS (20)
  - Intestinal obstruction [Recovered/Resolved]
  - Injection site pain [Recovered/Resolved]
  - Immunosuppression [Not Recovered/Not Resolved]
  - Wrong technique in product usage process [Recovered/Resolved]
  - Injection site indentation [Recovered/Resolved]
  - Skin haemorrhage [Unknown]
  - Injection site haemorrhage [Recovered/Resolved]
  - Intestinal obstruction [Recovered/Resolved]
  - Anaemia [Recovered/Resolved]
  - Migraine [Not Recovered/Not Resolved]
  - Dehydration [Recovered/Resolved]
  - Injection site discomfort [Recovered/Resolved]
  - Rash pustular [Unknown]
  - Intestinal obstruction [Unknown]
  - Fluid retention [Recovered/Resolved]
  - Hidradenitis [Unknown]
  - Dehydration [Recovered/Resolved]
  - Rash [Unknown]
  - Purpura [Unknown]
  - Folliculitis [Recovering/Resolving]

NARRATIVE: CASE EVENT DATE: 201811
